FAERS Safety Report 23224635 (Version 1)
Quarter: 2023Q4

REPORT INFORMATION
  Report Type: Report from Study
  Country: US (occurrence: US)
  Receive Date: 20231124
  Receipt Date: 20231124
  Transmission Date: 20240110
  Serious: Yes (Congenital Anomaly, Other)
  Sender: FDA-Public Use
  Company Number: US-drreddys-CLI/USA/23/0183522

PATIENT
  Age: 0 Year
  Sex: Male
  Weight: 2.8 kg

DRUGS (1)
  1. LURASIDONE HYDROCHLORIDE [Suspect]
     Active Substance: LURASIDONE HYDROCHLORIDE
     Indication: Foetal exposure timing unspecified
     Dosage: 20 MG

REACTIONS (9)
  - Cryptorchism [Unknown]
  - Inguinal hernia [Unknown]
  - Poor feeding infant [Unknown]
  - Hypernatraemia [Unknown]
  - Hypoglycaemia neonatal [Unknown]
  - Poor weight gain neonatal [Unknown]
  - Failure to thrive [Unknown]
  - Dehydration [Unknown]
  - Foetal exposure during pregnancy [Unknown]

NARRATIVE: CASE EVENT DATE: 20190927
